FAERS Safety Report 5145650-2 (Version None)
Quarter: 2006Q4

REPORT INFORMATION
  Report Type: 
  Country: None (occurrence: None)
  Receive Date: 20061031
  Receipt Date: 20061031
  Transmission Date: 20070319
  Serious: Yes (Other)
  Sender: FDA-Public Use
  Company Number: 2006RL000370

PATIENT
  Sex: 0

DRUGS (2)
  1. OMACOR (OMEGA-3 ACID ETHYL ESTERS) (1GM) [Suspect]
     Indication: BLOOD TRIGLYCERIDES INCREASED
  2. AMICAR [Suspect]
     Indication: DRUG USE FOR UNKNOWN INDICATION

REACTIONS (2)
  - DRUG PRESCRIBING ERROR [None]
  - MEDICATION ERROR [None]
